FAERS Safety Report 5495335-8 (Version None)
Quarter: 2007Q4

REPORT INFORMATION
  Report Type: 
  Country: None (occurrence: None)
  Receive Date: 20071023
  Receipt Date: 20071017
  Transmission Date: 20080405
  Serious: Yes (Other)
  Sender: FDA-Public Use
  Company Number: 2007332026

PATIENT
  Age: 38 Year
  Sex: Male
  Weight: 68 kg

DRUGS (6)
  1. VISINE TEARS (GLYCERIN, POLYETHYLENE GLYCOL, HYDROXYPROPYLMETHYLCELLUL [Suspect]
     Indication: DRY EYE
     Dosage: 1 DROP PER EYE ONCE, OPHTHALMIC
     Route: 047
     Dates: start: 20070922, end: 20070922
  2. NOVOLIN N [Concomitant]
  3. NOVOLIN R [Concomitant]
  4. PERCOCET [Concomitant]
  5. SKELAXIN [Concomitant]
  6. NAPROXEN [Concomitant]

REACTIONS (4)
  - BLINDNESS TRANSIENT [None]
  - EYE IRRITATION [None]
  - EYE SWELLING [None]
  - VISION BLURRED [None]
